FAERS Safety Report 5023392-1 (Version None)
Quarter: 2006Q2

REPORT INFORMATION
  Report Type: 
  Country: None (occurrence: None)
  Receive Date: 20060606
  Receipt Date: 20060524
  Transmission Date: 20061013
  Serious: Yes (Hospitalization)
  Sender: FDA-Public Use
  Company Number: 200610494BFR

PATIENT
  Age: 49 Year
  Sex: Male
  Weight: 55 kg

DRUGS (16)
  1. SORAFENIB [Suspect]
     Indication: RENAL CELL CARCINOMA STAGE UNSPECIFIED
     Dosage: 400 MG, BID, ORAL
     Route: 048
     Dates: start: 20060421
  2. MONO-TILDIEM [Concomitant]
  3. TRIATEC [Concomitant]
  4. FONZYLANE [Concomitant]
  5. ASPIRIN [Concomitant]
  6. INSULIN [Concomitant]
  7. CORDIPATCH [Concomitant]
  8. LEXOMIL [Concomitant]
  9. DOLIPRANE [Concomitant]
  10. LASILIX [Concomitant]
  11. ZOLOFT [Concomitant]
  12. URBANYL [Concomitant]
  13. AUGMENTIN '125' [Concomitant]
  14. NEXIUM [Concomitant]
  15. PRIMPERAN TAB [Concomitant]
  16. VOGALIB [Concomitant]

REACTIONS (3)
  - ANAEMIA [None]
  - FEBRILE NEUTROPENIA [None]
  - VOMITING [None]
